FAERS Safety Report 4324689-0 (Version None)
Quarter: 2004Q1

REPORT INFORMATION
  Report Type: 
  Country: None (occurrence: None)
  Receive Date: 20040323
  Receipt Date: 20040317
  Transmission Date: 20041129
  Serious: Yes (Hospitalization, Other)
  Sender: FDA-Public Use
  Company Number: 2004203896US

PATIENT
  Age: 53 Year
  Sex: Male

DRUGS (11)
  1. CELEBREX [Suspect]
     Indication: ARTHRALGIA
     Dosage: 200 MG, QD
     Dates: end: 20031112
  2. ALUPENT [Concomitant]
  3. BANTERIL [Concomitant]
  4. SLO-BID [Concomitant]
  5. LISINOPRIL [Concomitant]
  6. UROCIT-K [Concomitant]
  7. MULTIVITAMINS (ERGOCALCIFEROL, RETINOL, PANTHENOL) [Concomitant]
  8. ASPIRIN [Concomitant]
  9. FLOMAX [Concomitant]
  10. PEPCID [Concomitant]
  11. LIPITOR [Concomitant]

REACTIONS (5)
  - DIABETES MELLITUS [None]
  - DIZZINESS [None]
  - PITUITARY TUMOUR BENIGN [None]
  - PROSTATIC DISORDER [None]
  - VISUAL PATHWAY DISORDER [None]
